FAERS Safety Report 13113566 (Version 1)
Quarter: 2017Q1

REPORT INFORMATION
  Report Type: Spontaneous
  Country: CN (occurrence: CN)
  Receive Date: 20170113
  Receipt Date: 20170113
  Transmission Date: 20170428
  Serious: Yes (Other)
  Sender: FDA-Public Use
  Company Number: CN-PFIZER INC-2017009722

PATIENT
  Age: 49 Year
  Sex: Male
  Weight: 51 kg

DRUGS (3)
  1. SOLU-MEDROL [Suspect]
     Active Substance: METHYLPREDNISOLONE SODIUM SUCCINATE
     Indication: PNEUMONIA
     Dosage: 80 MG, 1X/DAY
     Route: 041
     Dates: start: 20161111, end: 20161112
  2. SOLU-MEDROL [Suspect]
     Active Substance: METHYLPREDNISOLONE SODIUM SUCCINATE
     Indication: ADJUVANT THERAPY
     Dosage: 160 MG, 2X/DAY
     Route: 041
     Dates: start: 20161109, end: 20161111
  3. SOLU-MEDROL [Suspect]
     Active Substance: METHYLPREDNISOLONE SODIUM SUCCINATE
     Dosage: 40 MG, 1X/DAY
     Route: 041
     Dates: start: 20161113, end: 20161116

REACTIONS (4)
  - Fluid retention [Recovered/Resolved]
  - Oedema peripheral [Recovered/Resolved]
  - Sodium retention [Recovered/Resolved]
  - Oliguria [Recovered/Resolved]

NARRATIVE: CASE EVENT DATE: 20161111
